FAERS Safety Report 14222459 (Version 2)
Quarter: 2018Q4

REPORT INFORMATION
  Report Type: Spontaneous
  Country: ES (occurrence: ES)
  Receive Date: 20171124
  Receipt Date: 20181117
  Transmission Date: 20190204
  Serious: Yes (Other)
  Sender: FDA-Public Use
  Company Number: ES-ACCORD-061307

PATIENT
  Age: 80 Year
  Sex: Male

DRUGS (7)
  1. ACLIDINIUM BROMIDE. [Concomitant]
     Active Substance: ACLIDINIUM BROMIDE
  2. BICALUTAMIDE. [Concomitant]
     Active Substance: BICALUTAMIDE
     Indication: METASTASES TO BONE
  3. LEUPRORELIN/LEUPRORELIN ACETATE [Concomitant]
     Indication: METASTASES TO BONE
  4. INDACATEROL [Concomitant]
     Active Substance: INDACATEROL
  5. ATORVASTATIN [Concomitant]
     Active Substance: ATORVASTATIN
  6. ZOLEDRONIC ACID [Suspect]
     Active Substance: ZOLEDRONIC ACID
     Indication: METASTASES TO BONE
     Route: 042
     Dates: start: 201311
  7. OMEPRAZOLE. [Concomitant]
     Active Substance: OMEPRAZOLE
     Route: 048

REACTIONS (2)
  - Fanconi syndrome [Recovering/Resolving]
  - Renal failure [Recovering/Resolving]
